FAERS Safety Report 10312746 (Version 2)
Quarter: 2014Q3

REPORT INFORMATION
  Report Type: Spontaneous
  Country: US (occurrence: US)
  Receive Date: 20140718
  Receipt Date: 20140724
  Transmission Date: 20150326
  Serious: No
  Sender: FDA-Public Use
  Company Number: US-SHIRE-US201404037

PATIENT
  Age: 83 Year
  Sex: Female

DRUGS (10)
  1. VITAMIN B12 [Concomitant]
     Active Substance: CYANOCOBALAMIN
     Indication: ANAEMIA
     Dosage: UNK, OTHER (MONTHLY)
     Route: 065
     Dates: start: 2010
  2. LEVOTHYROXINE [Concomitant]
     Active Substance: LEVOTHYROXINE
     Indication: HYPOTHYROIDISM
     Dosage: 0.05 MG, 1X/DAY:QD (BEFORE BREAKFAST)
     Route: 048
     Dates: start: 1953
  3. FLORASTOR [Concomitant]
     Active Substance: SACCHAROMYCES CEREVISIAE
     Indication: DIARRHOEA
     Dosage: 250 MG, 2X/DAY:BID
     Route: 048
     Dates: start: 201305
  4. LIALDA [Suspect]
     Active Substance: MESALAMINE
     Indication: COLITIS MICROSCOPIC
     Dosage: 2.4 G (TWO 1.2 G), 1X/DAY:QD (EVERY MORNING)
     Route: 048
     Dates: start: 201305
  5. NORVASC [Concomitant]
     Active Substance: AMLODIPINE BESYLATE
     Indication: HYPERTENSION
     Dosage: 5 MG, 1X/DAY:QD
     Route: 048
     Dates: start: 2003
  6. SANCTURA [Concomitant]
     Active Substance: TROSPIUM CHLORIDE
     Indication: BLADDER DISORDER
     Dosage: UNK, UNKNOWN
     Route: 065
     Dates: end: 201406
  7. LIPITOR [Concomitant]
     Active Substance: ATORVASTATIN CALCIUM
     Indication: FIBROMUSCULAR DYSPLASIA
     Dosage: 10 MG, 1X/DAY:QD (AT BEDTIME)
     Route: 048
     Dates: start: 2003
  8. BENICAR HCT [Concomitant]
     Active Substance: HYDROCHLOROTHIAZIDE\OLMESARTAN MEDOXOMIL
     Indication: HYPERTENSION
     Dosage: 40 MG, 1X/DAY:QD
     Route: 048
     Dates: start: 2003
  9. PRILOSEC [Concomitant]
     Active Substance: OMEPRAZOLE MAGNESIUM
     Indication: DYSPEPSIA
     Dosage: 40 MG, 1X/DAY:QD
     Route: 048
     Dates: start: 201305
  10. TROSPIUM [Concomitant]
     Active Substance: TROSPIUM
     Indication: BLADDER DISORDER
     Dosage: 60 MG, 1X/DAY:QD (BEFORE BREAKFAST)
     Route: 048

REACTIONS (2)
  - Off label use [Not Recovered/Not Resolved]
  - Medication residue present [Not Recovered/Not Resolved]

NARRATIVE: CASE EVENT DATE: 201305
